FAERS Safety Report 23871968 (Version 1)
Quarter: 2024Q2

REPORT INFORMATION
  Report Type: Spontaneous
  Country: US (occurrence: US)
  Receive Date: 20240520
  Receipt Date: 20240520
  Transmission Date: 20240715
  Serious: Yes (Other)
  Sender: FDA-Public Use
  Company Number: US-BRISTOL-MYERS SQUIBB COMPANY-2024-073579

PATIENT

DRUGS (2)
  1. SPRYCEL [Suspect]
     Active Substance: DASATINIB
     Indication: Chronic myeloid leukaemia
  2. BOSULIF [Suspect]
     Active Substance: BOSUTINIB MONOHYDRATE
     Indication: Chronic myeloid leukaemia

REACTIONS (8)
  - Pancreatitis [Unknown]
  - Pancreatolithiasis [Unknown]
  - Arthralgia [Unknown]
  - Back disorder [Unknown]
  - Diarrhoea [Unknown]
  - Mass [Unknown]
  - Drug ineffective [Unknown]
  - Nausea [Unknown]
